FAERS Safety Report 4458004-9 (Version None)
Quarter: 2004Q3

REPORT INFORMATION
  Report Type: 
  Country: None (occurrence: None)
  Receive Date: 20040917
  Receipt Date: 20040409
  Transmission Date: 20050211
  Serious: Yes (Other)
  Sender: FDA-Public Use
  Company Number: US-JNJFOC-20040400619

PATIENT
  Age: 38 Year
  Sex: Male
  Weight: 88.4514 kg

DRUGS (6)
  1. TOPAMAX [Suspect]
     Indication: NEUROPATHIC PAIN
     Dosage: SEE IMAGE
     Route: 048
  2. TOPAMAX [Suspect]
     Indication: PAIN
     Dosage: SEE IMAGE
     Route: 048
  3. TRAZADONE (TRAZODONE) [Concomitant]
  4. VALIUM [Concomitant]
  5. EPIDURALS (ANAESTHETICS) [Concomitant]
  6. VICODIN [Concomitant]

REACTIONS (12)
  - ABNORMAL SENSATION IN EYE [None]
  - APHASIA [None]
  - BLINDNESS TRANSIENT [None]
  - CONFUSIONAL STATE [None]
  - CONVULSION [None]
  - FALL [None]
  - INSOMNIA [None]
  - MEMORY IMPAIRMENT [None]
  - MUSCLE SPASMS [None]
  - NIGHTMARE [None]
  - PARAESTHESIA [None]
  - TREMOR [None]
